FAERS Safety Report 24658022 (Version 1)
Quarter: 2024Q4

REPORT INFORMATION
  Report Type: Other
  Country: FR (occurrence: FR)
  Receive Date: 20241125
  Receipt Date: 20241125
  Transmission Date: 20250114
  Serious: Yes (Hospitalization)
  Sender: Atnahs Healthcare
  Company Number: None

PATIENT
  Age: 19 Day
  Sex: Male
  Weight: 3.83 kg

DRUGS (1)
  1. VALIUM [Suspect]
     Active Substance: DIAZEPAM
     Indication: Anxiety
     Dosage: 5MG 1X/DAY
     Route: 064
     Dates: start: 20230702, end: 20240402

REACTIONS (4)
  - Withdrawal syndrome [Recovering/Resolving]
  - Crying [Recovering/Resolving]
  - Poor feeding infant [Recovering/Resolving]
  - Maternal exposure during pregnancy [Recovered/Resolved]

NARRATIVE: CASE EVENT DATE: 20240402
